FAERS Safety Report 16249397 (Version 2)
Quarter: 2019Q3

REPORT INFORMATION
  Report Type: Spontaneous
  Country: FR (occurrence: FR)
  Receive Date: 20190429
  Receipt Date: 20190909
  Transmission Date: 20191004
  Serious: No
  Sender: FDA-Public Use
  Company Number: FR-SA-2019SA114858

PATIENT
  Age: 74 Year
  Sex: Female
  Weight: 60 kg

DRUGS (6)
  1. NEBIVOLOL HYDROCHLORIDE [Suspect]
     Active Substance: NEBIVOLOL HYDROCHLORIDE
     Indication: ARRHYTHMIA
     Dosage: 5 MG, QD
     Route: 048
     Dates: start: 2015
  2. PREGABALIN. [Suspect]
     Active Substance: PREGABALIN
     Indication: PAIN
     Dosage: 150 MG, QD
     Route: 048
     Dates: start: 2012
  3. TEMERIT [Concomitant]
     Active Substance: NEBIVOLOL
     Indication: ARRHYTHMIA
     Dosage: 5 MG
     Route: 048
     Dates: start: 2015
  4. LYRICA [Concomitant]
     Active Substance: PREGABALIN
     Indication: PAIN
     Dosage: 150 MG
     Route: 048
     Dates: start: 2012
  5. AUBAGIO [Suspect]
     Active Substance: TERIFLUNOMIDE
     Indication: MULTIPLE SCLEROSIS
     Dosage: 14 MG, QD
     Route: 048
     Dates: start: 20181128, end: 20190118
  6. XARELTO [Concomitant]
     Active Substance: RIVAROXABAN
     Indication: ARRHYTHMIA
     Dosage: 20 MG
     Route: 048
     Dates: start: 2015

REACTIONS (4)
  - Motor dysfunction [Recovered/Resolved with Sequelae]
  - Cyanosis [Recovered/Resolved with Sequelae]
  - Vasoconstriction [Recovered/Resolved with Sequelae]
  - Pain [Recovered/Resolved with Sequelae]

NARRATIVE: CASE EVENT DATE: 20190114
